FAERS Safety Report 4832016-5 (Version None)
Quarter: 2005Q4

REPORT INFORMATION
  Report Type: 
  Country: None (occurrence: None)
  Receive Date: 20051116
  Receipt Date: 20051108
  Transmission Date: 20060501
  Serious: Yes (Hospitalization)
  Sender: FDA-Public Use
  Company Number: 05H-167-0303452-00

PATIENT
  Age: 13 Year
  Sex: Female

DRUGS (2)
  1. GENTAMICIN SULFATE [Suspect]
     Indication: CYSTIC FIBROSIS
     Dosage: INTRAVENOUS
     Route: 042
  2. CEFTAZIDIME (NGX) (CEFTAZIDIME) [Suspect]
     Indication: CYSTIC FIBROSIS
     Dosage: INTRAVENOUS
     Route: 042

REACTIONS (6)
  - BLOOD URINE PRESENT [None]
  - HAEMODIALYSIS [None]
  - NEPHRITIS [None]
  - PROTEINURIA [None]
  - RENAL FAILURE ACUTE [None]
  - RENAL TUBULAR NECROSIS [None]
